FAERS Safety Report 16122215 (Version 1)
Quarter: 2019Q1

REPORT INFORMATION
  Report Type: Spontaneous
  Country: US (occurrence: US)
  Receive Date: 20190222
  Receipt Date: 20190222
  Transmission Date: 20190418
  Serious: Yes (Disabling)
  Sender: FDA-Public Use
  Company Number: None

PATIENT
  Age: 77 Year
  Sex: Male
  Weight: 77.11 kg

DRUGS (8)
  1. MAGNESIUM [Concomitant]
     Active Substance: MAGNESIUM
  2. SPIRONOLACTONE. [Concomitant]
     Active Substance: SPIRONOLACTONE
  3. IRBESARTAN 150MG [Suspect]
     Active Substance: IRBESARTAN
     Indication: HYPERTENSION
     Dates: start: 20190128, end: 20190203
  4. BABY ASPRIN [Concomitant]
     Active Substance: ASPIRIN
  5. OCUVITE [Concomitant]
     Active Substance: VITAMINS
  6. ASPRIN [Concomitant]
     Active Substance: ASPIRIN
  7. NIFEDIPINE. [Concomitant]
     Active Substance: NIFEDIPINE
  8. ALLOPURINOL. [Concomitant]
     Active Substance: ALLOPURINOL

REACTIONS (5)
  - Blood pressure increased [None]
  - Nausea [None]
  - Dizziness [None]
  - Peripheral swelling [None]
  - Glassy eyes [None]

NARRATIVE: CASE EVENT DATE: 20190204
